FAERS Safety Report 5096936-1 (Version None)
Quarter: 2006Q3

REPORT INFORMATION
  Report Type: 
  Country: None (occurrence: None)
  Receive Date: 20060906
  Receipt Date: 20060829
  Transmission Date: 20061208
  Serious: Yes (Hospitalization, Other)
  Sender: FDA-Public Use
  Company Number: US-JNJFOC-20060806817

PATIENT
  Sex: Female
  Weight: 102.06 kg

DRUGS (4)
  1. REMICADE [Suspect]
     Route: 042
  2. REMICADE [Suspect]
     Route: 042
  3. REMICADE [Suspect]
     Indication: RHEUMATOID ARTHRITIS
     Route: 042
  4. PREDNISONE TAB [Concomitant]
     Indication: PANCREATITIS

REACTIONS (5)
  - HOSPITALISATION [None]
  - HYPERSENSITIVITY [None]
  - INFUSION RELATED REACTION [None]
  - PANCREATITIS [None]
  - SHOCK [None]
